FAERS Safety Report 6342801-9 (Version None)
Quarter: 2009Q3

REPORT INFORMATION
  Report Type: 
  Country: None (occurrence: None)
  Receive Date: 20090908
  Receipt Date: 20090904
  Transmission Date: 20100115
  Serious: Yes (Death, Life-Threatening)
  Sender: FDA-Public Use
  Company Number: JP-JNJFOC-20090901989

PATIENT
  Age: 65 Year
  Sex: Female

DRUGS (5)
  1. RISPERDAL CONSTA [Suspect]
     Indication: SCHIZOPHRENIA
     Route: 030
  2. RISPERDAL [Suspect]
     Indication: DRUG USE FOR UNKNOWN INDICATION
     Route: 048
  3. HALOPERIDOL [Concomitant]
     Route: 065
  4. AKINETON [Concomitant]
     Route: 065
  5. ABILIFY [Concomitant]
     Route: 048

REACTIONS (2)
  - INAPPROPRIATE SCHEDULE OF DRUG ADMINISTRATION [None]
  - SUBARACHNOID HAEMORRHAGE [None]
